FAERS Safety Report 9371116 (Version 1)
Quarter: 2013Q2

REPORT INFORMATION
  Report Type: Spontaneous
  Country: US (occurrence: None)
  Receive Date: 20130626
  Receipt Date: 20130626
  Transmission Date: 20140414
  Serious: Yes (Disabling, Other)
  Sender: FDA-Public Use
  Company Number: None

PATIENT
  Age: 28 Year
  Sex: Female
  Weight: 63.5 kg

DRUGS (11)
  1. QUETIAPINE [Suspect]
  2. CLONAZEPAM [Concomitant]
  3. OXCARBAZEPINE [Concomitant]
  4. BUSPIRONE [Concomitant]
  5. DIPHENHYDRAMINE HCL [Concomitant]
  6. DOXYCICLINE [Concomitant]
  7. ONCE DAILY MULTIVITAMIN [Concomitant]
  8. FISH OIL [Concomitant]
  9. FLAXSEED OIL [Concomitant]
  10. BLACK CURRANT [Concomitant]
  11. TURMERIC [Concomitant]

REACTIONS (9)
  - Mania [None]
  - Depression [None]
  - Schizoaffective disorder [None]
  - Bipolar disorder [None]
  - Psychotic disorder [None]
  - Disease recurrence [None]
  - Delusion [None]
  - Hallucination [None]
  - Drug effect decreased [None]
